FAERS Safety Report 10512004 (Version 2)
Quarter: 2014Q4

REPORT INFORMATION
  Report Type: Other
  Country: US (occurrence: US)
  Receive Date: 20141010
  Receipt Date: 20141010
  Transmission Date: 20150528
  Serious: Yes (Other)
  Sender: FDA-Public Use
  Company Number: US-SHIRE-US201405560

PATIENT
  Sex: Male
  Weight: 76.19 kg

DRUGS (15)
  1. VYVANSE [Suspect]
     Active Substance: LISDEXAMFETAMINE DIMESYLATE
     Dosage: 50 MG, 1X/DAY:QD
     Route: 048
     Dates: start: 201408
  2. AMITIZA [Concomitant]
     Active Substance: LUBIPROSTONE
     Indication: CONSTIPATION
  3. MAGNESIUM [Concomitant]
     Active Substance: MAGNESIUM
     Indication: MINERAL SUPPLEMENTATION
     Dosage: UNK, UNKNOWN
     Route: 065
     Dates: start: 2013
  4. AMITIZA [Concomitant]
     Active Substance: LUBIPROSTONE
     Indication: IRRITABLE BOWEL SYNDROME
     Dosage: 24 MG, 1X/DAY:QD
     Route: 048
  5. VYVANSE [Suspect]
     Active Substance: LISDEXAMFETAMINE DIMESYLATE
     Indication: ATTENTION DEFICIT/HYPERACTIVITY DISORDER
     Dosage: 30 MG, 1X/DAY:QD
     Route: 048
     Dates: start: 2010, end: 2010
  6. VYVANSE [Suspect]
     Active Substance: LISDEXAMFETAMINE DIMESYLATE
     Dosage: 50 MG, 1X/DAY:QD
     Route: 048
     Dates: start: 2010, end: 2012
  7. PROTONIX [Concomitant]
     Active Substance: PANTOPRAZOLE SODIUM
     Indication: GASTROOESOPHAGEAL REFLUX DISEASE
     Dosage: UNK, UNKNOWN
     Route: 065
     Dates: start: 2014
  8. PRILOSEC [Concomitant]
     Active Substance: OMEPRAZOLE MAGNESIUM
     Indication: GASTROOESOPHAGEAL REFLUX DISEASE
     Dosage: UNK, UNKNOWN
     Route: 065
     Dates: end: 201407
  9. WELLBUTRIN [Concomitant]
     Active Substance: BUPROPION HYDROCHLORIDE
     Indication: PRODUCT USED FOR UNKNOWN INDICATION
     Dosage: 100 MG, 2X/DAY:BID
     Route: 065
     Dates: start: 201312, end: 201405
  10. VYVANSE [Suspect]
     Active Substance: LISDEXAMFETAMINE DIMESYLATE
     Dosage: 50 MG, 1X/DAY:QD
     Route: 048
     Dates: start: 201406, end: 201407
  11. VYVANSE [Suspect]
     Active Substance: LISDEXAMFETAMINE DIMESYLATE
     Dosage: 40 MG, 1X/DAY:QD
     Route: 048
     Dates: start: 201407, end: 201408
  12. WELLBUTRIN [Concomitant]
     Active Substance: BUPROPION HYDROCHLORIDE
     Dosage: 150 MG, 2X/DAY:BID
     Route: 065
     Dates: start: 201405
  13. MULTIVITAMIN                       /07504101/ [Concomitant]
     Active Substance: VITAMINS
     Indication: SUPPLEMENTATION THERAPY
     Dosage: UNK, UNKNOWN
     Route: 065
  14. PROPULSID [Concomitant]
     Active Substance: CISAPRIDE
     Indication: GASTROOESOPHAGEAL REFLUX DISEASE
     Dosage: UNK, UNKNOWN
     Route: 065
  15. ZUBSOLV [Concomitant]
     Active Substance: BUPRENORPHINE HYDROCHLORIDE\NALOXONE HYDROCHLORIDE
     Indication: DRUG DEPENDENCE
     Dosage: 8 MG, 1X/DAY:QD
     Route: 048

REACTIONS (14)
  - Respiratory disorder [Recovered/Resolved]
  - Irritability [Recovered/Resolved]
  - Vitamin D deficiency [Not Recovered/Not Resolved]
  - Nausea [Not Recovered/Not Resolved]
  - Drug ineffective [Not Recovered/Not Resolved]
  - Headache [Not Recovered/Not Resolved]
  - Hypoxia [Recovered/Resolved]
  - Influenza like illness [Recovered/Resolved]
  - Lacrimation increased [Recovered/Resolved]
  - Dizziness [Recovered/Resolved]
  - Product quality issue [Unknown]
  - Sleep disorder [Unknown]
  - Mental impairment [Recovered/Resolved]
  - Fatigue [Recovered/Resolved]

NARRATIVE: CASE EVENT DATE: 2011
